FAERS Safety Report 10038822 (Version 2)
Quarter: 2014Q1

REPORT INFORMATION
  Report Type: Spontaneous
  Country: GB (occurrence: GB)
  Receive Date: 20140326
  Receipt Date: 20140326
  Transmission Date: 20141002
  Serious: Yes (Hospitalization, Other)
  Sender: FDA-Public Use
  Company Number: GB-WATSON-2013B-03454

PATIENT
  Sex: Male

DRUGS (1)
  1. BACLOFEN (UNKNOWN) [Suspect]
     Indication: PRODUCT USED FOR UNKNOWN INDICATION
     Dosage: 18.97 ?G, DAILY
     Route: 037

REACTIONS (3)
  - Sepsis [Not Recovered/Not Resolved]
  - Implant site infection [Not Recovered/Not Resolved]
  - CSF white blood cell count increased [Not Recovered/Not Resolved]
